FAERS Safety Report 9201720 (Version 1)
Quarter: 2013Q2

REPORT INFORMATION
  Report Type: Spontaneous
  Country: US (occurrence: US)
  Receive Date: 20130401
  Receipt Date: 20130401
  Transmission Date: 20140414
  Serious: No
  Sender: FDA-Public Use
  Company Number: US-PFIZER INC-2013103087

PATIENT
  Age: 64 Year
  Sex: Female
  Weight: 68.03 kg

DRUGS (5)
  1. LIPITOR [Suspect]
     Indication: BLOOD CHOLESTEROL INCREASED
     Dosage: 20 MG, DAILY
     Route: 048
  2. LIPITOR [Suspect]
     Dosage: 40 MG, DAILY
     Route: 048
  3. LIPITOR [Suspect]
     Dosage: 80 MG (TWO TABLETS OF 40 MG), DAILY
     Route: 048
  4. TOPROL [Concomitant]
     Indication: HYPERTENSION
     Dosage: 6 MG, DAILY
  5. DILTIAZEM [Concomitant]
     Indication: HYPERTENSION
     Dosage: 240 MG, DAILY

REACTIONS (1)
  - Drug ineffective [Unknown]
